FAERS Safety Report 7289834-6 (Version None)
Quarter: 2011Q1

REPORT INFORMATION
  Report Type: 
  Country: None (occurrence: None)
  Receive Date: 20110214
  Receipt Date: 20110203
  Transmission Date: 20110831
  Serious: No
  Sender: FDA-Public Use
  Company Number: US-BIOGENIDEC-2011BI004466

PATIENT
  Age: 46 Year
  Sex: Female

DRUGS (2)
  1. AVONEX [Suspect]
     Indication: MULTIPLE SCLEROSIS
     Route: 030
     Dates: start: 20021001, end: 20090108
  2. AVONEX [Suspect]
     Route: 030
     Dates: start: 20110101

REACTIONS (5)
  - HYPERHIDROSIS [None]
  - FEELING HOT [None]
  - INFLUENZA LIKE ILLNESS [None]
  - COLD SWEAT [None]
  - BRONCHITIS [None]
